FAERS Safety Report 8454593-8 (Version None)
Quarter: 2012Q2

REPORT INFORMATION
  Report Type: 
  Country: None (occurrence: None)
  Receive Date: 20120621
  Receipt Date: 20120611
  Transmission Date: 20120825
  Serious: No
  Sender: FDA-Public Use
  Company Number: US-BIOGENIDEC-2012BI020624

PATIENT
  Sex: Male

DRUGS (2)
  1. KEPPRA [Concomitant]
     Indication: EPILEPSY
  2. AVONEX [Suspect]
     Indication: MULTIPLE SCLEROSIS
     Route: 030
     Dates: start: 20110922

REACTIONS (5)
  - FEELING HOT [None]
  - ASTHENIA [None]
  - DYSPNOEA [None]
  - MUSCLE FATIGUE [None]
  - GASTROOESOPHAGEAL REFLUX DISEASE [None]
